FAERS Safety Report 5473847-0 (Version None)
Quarter: 2007Q3

REPORT INFORMATION
  Report Type: 
  Country: None (occurrence: None)
  Receive Date: 20070831
  Receipt Date: 20070402
  Transmission Date: 20080115
  Serious: No
  Sender: FDA-Public Use
  Company Number: 239287

PATIENT
  Age: 80 Year
  Sex: Female

DRUGS (5)
  1. LUCENTIS [Suspect]
     Indication: MACULAR DEGENERATION
     Dosage: INTRAVITREAL
     Dates: start: 20070215
  2. LOPRESSOR [Concomitant]
  3. DYAZIDE [Concomitant]
  4. EPIDURAL (UNK INGREDIENTS) (EPIDURAL BLOCK NOS) [Concomitant]
  5. TYLENOL PM (ACETAMINOPHEN, DIPHENHYDRAMINE HYDROCHLORIDE) [Concomitant]

REACTIONS (1)
  - VISUAL DISTURBANCE [None]
